FAERS Safety Report 5270812-3 (Version None)
Quarter: 2007Q1

REPORT INFORMATION
  Report Type: 
  Country: None (occurrence: None)
  Receive Date: 20070321
  Receipt Date: 20070312
  Transmission Date: 20070707
  Serious: Yes (Hospitalization)
  Sender: FDA-Public Use
  Company Number: ES-BRISTOL-MYERS SQUIBB COMPANY-13717327

PATIENT
  Age: 48 Year
  Sex: Female

DRUGS (4)
  1. CETUXIMAB [Suspect]
     Indication: COLORECTAL CANCER
     Route: 041
     Dates: start: 20070205, end: 20070205
  2. OXALIPLATIN [Suspect]
     Indication: COLORECTAL CANCER
     Route: 042
     Dates: start: 20070129, end: 20070129
  3. FOLINIC ACID [Suspect]
     Indication: COLORECTAL CANCER
     Route: 042
     Dates: start: 20070130, end: 20070130
  4. FLUOROURACIL [Suspect]
     Indication: COLORECTAL CANCER
     Route: 042
     Dates: start: 20070130, end: 20070130

REACTIONS (3)
  - ANAL FISSURE [None]
  - FEBRILE NEUTROPENIA [None]
  - MUCOSAL INFLAMMATION [None]
